FAERS Safety Report 6738828-5 (Version None)
Quarter: 2010Q2

REPORT INFORMATION
  Report Type: 
  Country: None (occurrence: None)
  Receive Date: 20100520
  Receipt Date: 20100505
  Transmission Date: 20101027
  Serious: Yes (Death)
  Sender: FDA-Public Use
  Company Number: 584752

PATIENT
  Sex: 0

DRUGS (10)
  1. CARBOPLATIN [Suspect]
     Indication: MEDULLOBLASTOMA
     Dosage: 500 MG/M 2 MILLIGRAM(S) / SQ. METER (UNKNOWN)
  2. ETOPOSIDE [Suspect]
     Indication: MEDULLOBLASTOMA
     Dosage: 250 MG/M 2 MILLIGRAM(S) /SQ. METER (UNKNOWN)
  3. CYCLOPHOSPHAMIDE [Suspect]
     Indication: MEDULLOBLASTOMA
     Dosage: 1500 MG/M 2 MILLIGRAM(S) /SQ. METER (UNKNOWN)
  4. THIOTEPA [Suspect]
     Indication: MEDULLOBLASTOMA
     Dosage: 300 MG/M 2 MILLIGRAM(S) / SQ. METER, (UNKNOWN)
  5. MELPHALAN HYDROCHLORIDE [Suspect]
     Indication: MEDULLOBLASTOMA
     Dosage: 60 MG/M 2 MILLIGRAM(S) /SQ. METER, (UNKNOWN)
  6. MESNA [Suspect]
     Indication: MEDULLOBLASTOMA
     Dosage: 300 MG/M 2 MILLIGRAM(S) /SQ. METER (UNKNOWN)
  7. ACYCLOVIR SODIUM [Concomitant]
  8. FLUCONAZOLE [Concomitant]
  9. PENTAMIDINE ISETHIONATE [Concomitant]
  10. GRANULOCYTE COLONY STIMULATING FACTOR [Concomitant]

REACTIONS (5)
  - HAEMATOTOXICITY [None]
  - MUCOSAL INFLAMMATION [None]
  - MULTI-ORGAN FAILURE [None]
  - NEUTROPENIA [None]
  - SEPSIS [None]
